FAERS Safety Report 9110959 (Version 2)
Quarter: 2014Q1

REPORT INFORMATION
  Report Type: Spontaneous
  Country: US (occurrence: US)
  Receive Date: 20130219
  Receipt Date: 20140213
  Transmission Date: 20141002
  Serious: No
  Sender: FDA-Public Use
  Company Number: US-BRISTOL-MYERS SQUIBB COMPANY-17177437

PATIENT
  Age: 62 Year
  Sex: Female

DRUGS (2)
  1. ORENCIA [Suspect]
     Indication: RHEUMATOID ARTHRITIS
     Dosage: LAST INF: A MONTH AGO(28DEC2012)
     Route: 042
  2. REMICADE [Concomitant]

REACTIONS (2)
  - Pain [Not Recovered/Not Resolved]
  - Therapeutic response decreased [Unknown]
